FAERS Safety Report 18259000 (Version 1)
Quarter: 2020Q3

REPORT INFORMATION
  Report Type: Spontaneous
  Country: PL (occurrence: PL)
  Receive Date: 20200911
  Receipt Date: 20200911
  Transmission Date: 20201103
  Serious: Yes (Other)
  Sender: FDA-Public Use
  Company Number: NVSC2020PL244797

PATIENT
  Age: 49 Year
  Sex: Male

DRUGS (1)
  1. REVOLADE [Suspect]
     Active Substance: ELTROMBOPAG
     Indication: PRODUCT USED FOR UNKNOWN INDICATION
     Dosage: 25 MG (25MG WITH A BREAK EVERY THIRD DAY)
     Route: 065

REACTIONS (10)
  - Myocardial infarction [Unknown]
  - Myalgia [Unknown]
  - Headache [Unknown]
  - Platelet count abnormal [Unknown]
  - Off label use [Unknown]
  - Cataract [Unknown]
  - Insomnia [Unknown]
  - Liver disorder [Unknown]
  - Pruritus [Unknown]
  - Drug ineffective [Unknown]

NARRATIVE: CASE EVENT DATE: 201104
